FAERS Safety Report 8611630 (Version 2)
Quarter: 2012Q4

REPORT INFORMATION
  Report Type: 
  Country: US (occurrence: US)
  Receive Date: 20120613
  Receipt Date: 20121022
  Transmission Date: 20130627
  Serious: Yes (Hospitalization)
  Sender: FDA-Public Use
  Company Number: US-BAYER-2012-057495

PATIENT
  Age: 40 Year
  Sex: Female
  Weight: 65.31 kg

DRUGS (8)
  1. YASMIN [Suspect]
     Indication: CONTRACEPTION
     Dosage: UNK
     Dates: start: 2003, end: 2010
  2. YAZ [Suspect]
  3. PARACETAMOL W/TRAMADOL HYDROCHLORIDE [Concomitant]
     Dosage: 37.5-325 mg,1 every 6 hours
     Route: 048
     Dates: start: 20100121
  4. LIDODERM [Concomitant]
     Dosage: 700 mg, UNK
     Route: 061
     Dates: start: 20100121
  5. SKELAXIN [Concomitant]
     Dosage: 800 mg, TID
     Route: 048
     Dates: start: 20100121
  6. TYLENOL [Concomitant]
     Dosage: UNK
     Route: 048
     Dates: start: 20100123
  7. NEURONTIN [Concomitant]
  8. NEXIUM [Concomitant]

REACTIONS (1)
  - Transverse sinus thrombosis [Recovered/Resolved]
